FAERS Safety Report 23666810 (Version 1)
Quarter: 2024Q1

REPORT INFORMATION
  Report Type: Spontaneous
  Country: JP (occurrence: JP)
  Receive Date: 20240325
  Receipt Date: 20240325
  Transmission Date: 20240410
  Serious: Yes (Hospitalization, Other)
  Sender: FDA-Public Use
  Company Number: JP-Oxford Pharmaceuticals, LLC-2154764

PATIENT
  Age: 5 Decade
  Sex: Female

DRUGS (2)
  1. TIZANIDINE HYDROCHLORIDE [Suspect]
     Active Substance: TIZANIDINE HYDROCHLORIDE
     Indication: Neck pain
  2. ETIZOLAM [Suspect]
     Active Substance: ETIZOLAM

REACTIONS (9)
  - Decorticate posture [Recovered/Resolved]
  - Insomnia [Unknown]
  - Hallucination, auditory [Recovered/Resolved]
  - Tachycardia [Recovered/Resolved]
  - Hypertension [Recovered/Resolved]
  - Tremor [Recovered/Resolved]
  - Drug withdrawal syndrome [Recovered/Resolved]
  - Tachypnoea [Recovered/Resolved]
  - Delusion [Unknown]
